FAERS Safety Report 21854543 (Version 2)
Quarter: 2023Q1

REPORT INFORMATION
  Report Type: Spontaneous
  Country: US (occurrence: US)
  Receive Date: 20230112
  Receipt Date: 20230120
  Transmission Date: 20230418
  Serious: Yes (Hospitalization)
  Sender: FDA-Public Use
  Company Number: US-VERTEX PHARMACEUTICALS-2023-000335

PATIENT
  Age: 17 Year
  Sex: Female

DRUGS (2)
  1. TRIKAFTA [Suspect]
     Active Substance: ELEXACAFTOR\IVACAFTOR\TEZACAFTOR
     Indication: Cystic fibrosis
     Dosage: 1/2 AM TAB, NO PM TAB
     Route: 048
     Dates: start: 20211202, end: 20220203
  2. TRIKAFTA [Suspect]
     Active Substance: ELEXACAFTOR\IVACAFTOR\TEZACAFTOR
     Dosage: 1 AM TAB, 1/2 PM TAB
     Route: 048
     Dates: start: 20220203, end: 20221216

REACTIONS (7)
  - Infective pulmonary exacerbation of cystic fibrosis [Unknown]
  - Psychotic disorder [Not Recovered/Not Resolved]
  - Agitation [Unknown]
  - Impulsive behaviour [Unknown]
  - Anger [Unknown]
  - Mental disorder [Unknown]
  - Schizophrenia [Unknown]

NARRATIVE: CASE EVENT DATE: 20220101
